FAERS Safety Report 16862576 (Version 1)
Quarter: 2019Q4

REPORT INFORMATION
  Report Type: Spontaneous
  Country: US (occurrence: US)
  Receive Date: 20190927
  Receipt Date: 20190927
  Transmission Date: 20200122
  Serious: Yes (Hospitalization)
  Sender: FDA-Public Use
  Company Number: None

PATIENT
  Age: 11 Year
  Sex: Female
  Weight: 30.15 kg

DRUGS (4)
  1. GAMMAPLEX [Suspect]
     Active Substance: HUMAN IMMUNOGLOBULIN G
     Indication: POLYNEUROPATHY
     Dosage: ?          OTHER FREQUENCY:30G X2 DAYS Q4WEEK;?
     Route: 042
     Dates: start: 20190210, end: 20190310
  2. ACETAMINOPHEN ORAL SOLN 160MG/5ML [Concomitant]
  3. NS 250ML IV [Concomitant]
     Dates: start: 20190310, end: 20190310
  4. DIPHENHYDRAMINE 12.5MG/5ML LIQUID [Concomitant]

REACTIONS (3)
  - Sensation of foreign body [None]
  - Dyspnoea [None]
  - Infusion related reaction [None]

NARRATIVE: CASE EVENT DATE: 20190310
